FAERS Safety Report 5315747-2 (Version None)
Quarter: 2007Q2

REPORT INFORMATION
  Report Type: 
  Country: None (occurrence: None)
  Receive Date: 20070503
  Receipt Date: 20070503
  Transmission Date: 20071010
  Serious: Yes (Other)
  Sender: FDA-Public Use
  Company Number: US-GLAXOSMITHKLINE-A0649636A

PATIENT
  Age: 80 Year
  Sex: Female

DRUGS (6)
  1. DEBROX DROPS [Suspect]
     Indication: CERUMEN REMOVAL
     Route: 001
     Dates: start: 20070401
  2. TOPROL-XL [Concomitant]
  3. LISINOPRIL AND HYDROCHLOROTHIAZIDE [Concomitant]
  4. SYNTHROID [Concomitant]
  5. VITAMIN D [Concomitant]
  6. ACTONEL [Concomitant]

REACTIONS (4)
  - DEAFNESS TRANSITORY [None]
  - EAR DISCOMFORT [None]
  - HYPOACUSIS [None]
  - TINNITUS [None]
